FAERS Safety Report 9850739 (Version 1)
Quarter: 2014Q1

REPORT INFORMATION
  Report Type: Spontaneous
  Country: CA (occurrence: CA)
  Receive Date: 20140128
  Receipt Date: 20140128
  Transmission Date: 20141002
  Serious: Yes (Other)
  Sender: FDA-Public Use
  Company Number: CA-PFIZER INC-2014023049

PATIENT
  Sex: 0

DRUGS (1)
  1. ADRIAMYCIN [Suspect]

REACTIONS (1)
  - Renal impairment [Unknown]
